FAERS Safety Report 16307922 (Version 1)
Quarter: 2019Q2

REPORT INFORMATION
  Report Type: Spontaneous
  Country: SI (occurrence: SI)
  Receive Date: 20190514
  Receipt Date: 20190514
  Transmission Date: 20190711
  Serious: Yes (Other)
  Sender: FDA-Public Use
  Company Number: SI-ROCHE-2313229

PATIENT
  Age: 70 Year

DRUGS (18)
  1. CAPECITABINE. [Suspect]
     Active Substance: CAPECITABINE
     Indication: ADENOCARCINOMA OF COLON
     Route: 048
     Dates: start: 20111123
  2. CETUXIMAB. [Suspect]
     Active Substance: CETUXIMAB
     Indication: INTESTINAL METASTASIS
     Route: 065
     Dates: start: 201702
  3. IRINOTECAN [Suspect]
     Active Substance: IRINOTECAN
     Indication: INTESTINAL METASTASIS
  4. STIVARGA [Suspect]
     Active Substance: REGORAFENIB
     Indication: PRODUCT USED FOR UNKNOWN INDICATION
     Route: 065
  5. IRINOTECAN [Suspect]
     Active Substance: IRINOTECAN
     Indication: ADENOCARCINOMA OF COLON
     Route: 065
  6. ATORVASTATIN CALCIUM. [Concomitant]
     Active Substance: ATORVASTATIN CALCIUM
     Indication: ADENOCARCINOMA OF COLON
     Route: 065
     Dates: start: 2012, end: 201207
  7. FILGRASTIM [Suspect]
     Active Substance: FILGRASTIM
     Indication: NEUTROPENIA
     Route: 065
  8. XELODA [Concomitant]
     Active Substance: CAPECITABINE
     Route: 065
  9. FLUOROURACIL. [Suspect]
     Active Substance: FLUOROURACIL
     Indication: METASTASES TO LUNG
     Route: 065
     Dates: start: 201005, end: 201012
  10. IRINOTECAN [Suspect]
     Active Substance: IRINOTECAN
     Indication: METASTASES TO LUNG
     Route: 065
     Dates: start: 20111123
  11. FOLINIC ACID [Suspect]
     Active Substance: LEUCOVORIN
     Indication: METASTASES TO LUNG
     Route: 065
     Dates: start: 201005, end: 201012
  12. OXALIPLATIN. [Suspect]
     Active Substance: OXALIPLATIN
     Indication: ADENOCARCINOMA OF COLON
     Route: 065
     Dates: start: 201005
  13. XELODA [Concomitant]
     Active Substance: CAPECITABINE
     Indication: ADENOCARCINOMA OF COLON
     Route: 048
     Dates: start: 2012, end: 201207
  14. BEVACIZUMAB. [Suspect]
     Active Substance: BEVACIZUMAB
     Indication: PRODUCT USED FOR UNKNOWN INDICATION
     Route: 065
  15. CETUXIMAB. [Suspect]
     Active Substance: CETUXIMAB
     Indication: METASTASES TO LUNG
  16. PANITUMUMAB [Suspect]
     Active Substance: PANITUMUMAB
     Indication: ADENOCARCINOMA OF COLON
     Route: 065
     Dates: start: 20111123, end: 20171011
  17. FLUOROURACIL. [Suspect]
     Active Substance: FLUOROURACIL
     Indication: INTESTINAL METASTASIS
     Route: 065
     Dates: start: 201702
  18. FOLINIC ACID [Suspect]
     Active Substance: LEUCOVORIN
     Indication: INTESTINAL METASTASIS
     Route: 065
     Dates: start: 201702

REACTIONS (22)
  - Urticaria [Unknown]
  - Hypomagnesaemia [Unknown]
  - Lymphadenectomy [Unknown]
  - Infusion related reaction [Unknown]
  - Administration site extravasation [Unknown]
  - Diarrhoea [Unknown]
  - Stomatitis [Unknown]
  - Abdominal pain upper [Unknown]
  - Metastases to liver [Unknown]
  - Chest pain [Unknown]
  - Epistaxis [Unknown]
  - Hypertension [Not Recovered/Not Resolved]
  - Paronychia [Unknown]
  - Skin ulcer [Unknown]
  - Dysphonia [Unknown]
  - Hypersensitivity [Unknown]
  - Neutropenia [Unknown]
  - Metastases to lung [Recovered/Resolved]
  - Inflammation [Unknown]
  - Intestinal metastasis [Recovered/Resolved]
  - Pulmonary embolism [Unknown]
  - Investigation abnormal [Unknown]

NARRATIVE: CASE EVENT DATE: 20120406
